FAERS Safety Report 5811122-2 (Version None)
Quarter: 2008Q3

REPORT INFORMATION
  Report Type: 
  Country: None (occurrence: None)
  Receive Date: 20080716
  Receipt Date: 20080704
  Transmission Date: 20090109
  Serious: Yes (Hospitalization)
  Sender: FDA-Public Use
  Company Number: PHHY2008FR13174

PATIENT
  Age: 88 Year
  Sex: Female

DRUGS (1)
  1. ZOLEDRONIC ACID [Suspect]
     Dosage: UNK
     Route: 042

REACTIONS (4)
  - DIARRHOEA [None]
  - GASTRIC DISORDER [None]
  - HYPOCALCAEMIA [None]
  - SOMNOLENCE [None]
